FAERS Safety Report 7145234-0 (Version None)
Quarter: 2010Q4

REPORT INFORMATION
  Report Type: 
  Country: None (occurrence: None)
  Receive Date: 20101208
  Receipt Date: 20101127
  Transmission Date: 20110411
  Serious: Yes (Other)
  Sender: FDA-Public Use
  Company Number: IN-JNJFOC-20101201258

PATIENT
  Age: 52 Year
  Sex: Male

DRUGS (8)
  1. FENTANYL [Suspect]
     Indication: PAIN MANAGEMENT
     Route: 062
  2. FENTANYL [Suspect]
     Route: 062
  3. FENTANYL [Suspect]
     Route: 062
  4. GABAPENTIN [Suspect]
     Indication: PAIN MANAGEMENT
     Route: 065
  5. IBUPROFEN W/PARACETAMOL [Suspect]
     Indication: PAIN MANAGEMENT
     Route: 065
  6. MORPHINE [Suspect]
     Indication: PRODUCT USED FOR UNKNOWN INDICATION
     Route: 048
  7. LYRICA [Concomitant]
     Dosage: 300 MG IN DIVIDED DOSES
     Route: 065
  8. LYRICA [Concomitant]
     Route: 065

REACTIONS (10)
  - BRADYPHRENIA [None]
  - CONSTIPATION [None]
  - DEPRESSION [None]
  - DRUG INEFFECTIVE [None]
  - FATIGUE [None]
  - INSOMNIA [None]
  - MOBILITY DECREASED [None]
  - QUALITY OF LIFE DECREASED [None]
  - SOMNOLENCE [None]
  - WEIGHT DECREASED [None]
